FAERS Safety Report 7845032-6 (Version None)
Quarter: 2011Q4

REPORT INFORMATION
  Report Type: 
  Country: None (occurrence: None)
  Receive Date: 20111025
  Receipt Date: 20111018
  Transmission Date: 20120403
  Serious: Yes (Other)
  Sender: FDA-Public Use
  Company Number: FR-BAYER-2011-101506

PATIENT

DRUGS (1)
  1. BISEPTINE [Suspect]

REACTIONS (2)
  - LYMPHANGITIS [None]
  - SKIN NECROSIS [None]
